FAERS Safety Report 21225942 (Version 1)
Quarter: 2022Q3

REPORT INFORMATION
  Report Type: Spontaneous
  Country: US (occurrence: US)
  Receive Date: 20220818
  Receipt Date: 20220818
  Transmission Date: 20221026
  Serious: Yes (Life-Threatening, Hospitalization, Other)
  Sender: FDA-Public Use
  Company Number: US-SUN PHARMACEUTICAL INDUSTRIES LTD-2022R1-349130

PATIENT
  Age: 60 Year
  Sex: Male

DRUGS (2)
  1. LITHIUM [Suspect]
     Active Substance: LITHIUM
     Indication: Bipolar disorder
     Dosage: 900 MILLIGRAM, DAILY
     Route: 065
  2. ASENAPINE [Suspect]
     Active Substance: ASENAPINE
     Indication: Bipolar disorder
     Dosage: 10 MILLIGRAM, NIGHTLY
     Route: 065

REACTIONS (12)
  - Respiratory failure [Recovering/Resolving]
  - Toxicity to various agents [Recovering/Resolving]
  - Neuroleptic malignant syndrome [Recovering/Resolving]
  - Hyperkalaemia [Recovering/Resolving]
  - Leukocytosis [Recovering/Resolving]
  - Hypernatraemia [Recovering/Resolving]
  - Nephrogenic diabetes insipidus [Recovering/Resolving]
  - Mental status changes [Recovering/Resolving]
  - Delirium [Recovering/Resolving]
  - Dysmetria [Recovering/Resolving]
  - Dysdiadochokinesis [Recovering/Resolving]
  - Tremor [Recovering/Resolving]
